FAERS Safety Report 20687858 (Version 2)
Quarter: 2022Q2

REPORT INFORMATION
  Report Type: Report from Study
  Country: CA (occurrence: CA)
  Receive Date: 20220408
  Receipt Date: 20220602
  Transmission Date: 20220721
  Serious: Yes (Other)
  Sender: FDA-Public Use
  Company Number: CA-BRISTOL-MYERS SQUIBB COMPANY-BMS-2022-023680

PATIENT
  Age: 65 Year
  Sex: Male
  Weight: 79 kg

DRUGS (5)
  1. OPDIVO [Suspect]
     Active Substance: NIVOLUMAB
     Indication: Oesophageal carcinoma
     Dosage: 240 MILLIGRAM, Q2WK
     Route: 042
     Dates: start: 20201217
  2. OPDIVO [Suspect]
     Active Substance: NIVOLUMAB
     Route: 042
     Dates: start: 20220117
  3. ALLOPURINOL [Concomitant]
     Active Substance: ALLOPURINOL
     Indication: Product used for unknown indication
     Dosage: UNK
     Route: 065
  4. RAMIPRIL [Concomitant]
     Active Substance: RAMIPRIL
     Indication: Product used for unknown indication
     Dosage: UNK
     Route: 065
  5. PANTOPRAZOLE [Concomitant]
     Active Substance: PANTOPRAZOLE
     Indication: Product used for unknown indication
     Dosage: UNK
     Route: 065

REACTIONS (7)
  - Adverse event [Unknown]
  - Cough [Recovering/Resolving]
  - COVID-19 [Recovered/Resolved]
  - Rash [Unknown]
  - Diarrhoea [Recovered/Resolved]
  - Dysphonia [Unknown]
  - Erythema [Unknown]

NARRATIVE: CASE EVENT DATE: 20220203
